FAERS Safety Report 5623237-2 (Version None)
Quarter: 2008Q1

REPORT INFORMATION
  Report Type: 
  Country: None (occurrence: None)
  Receive Date: 20080212
  Receipt Date: 20080205
  Transmission Date: 20080703
  Serious: Yes (Hospitalization, Other)
  Sender: FDA-Public Use
  Company Number: FR-WYE-G01011208

PATIENT
  Sex: Male

DRUGS (2)
  1. TEMSIROLIMUS [Suspect]
     Indication: RENAL CANCER METASTATIC
     Route: 042
     Dates: start: 20080104, end: 20080121
  2. TEMSIROLIMUS [Suspect]
     Indication: RENAL CELL CARCINOMA RECURRENT

REACTIONS (14)
  - ANAEMIA [None]
  - ASTHENIA [None]
  - C-REACTIVE PROTEIN INCREASED [None]
  - CYTOLYTIC HEPATITIS [None]
  - DYSPNOEA [None]
  - FEEDING DISORDER [None]
  - GENERAL PHYSICAL HEALTH DETERIORATION [None]
  - HYPOCAPNIA [None]
  - HYPONATRAEMIA [None]
  - HYPOXIA [None]
  - LUNG DISORDER [None]
  - PAIN [None]
  - PYREXIA [None]
  - RENAL FAILURE [None]
